FAERS Safety Report 7035549-9 (Version None)
Quarter: 2010Q4

REPORT INFORMATION
  Report Type: 
  Country: None (occurrence: None)
  Receive Date: 20101008
  Receipt Date: 20101004
  Transmission Date: 20110411
  Serious: Yes (Death, Life-Threatening)
  Sender: FDA-Public Use
  Company Number: DE-JNJFOC-20090600776

PATIENT
  Sex: Male

DRUGS (3)
  1. REOPRO [Suspect]
     Indication: ACUTE MYOCARDIAL INFARCTION
     Route: 022
  2. HEPARIN [Concomitant]
     Indication: PRODUCT USED FOR UNKNOWN INDICATION
  3. ACETYLSALICYLIC ACID SRT [Concomitant]
     Indication: PRODUCT USED FOR UNKNOWN INDICATION

REACTIONS (5)
  - ARTERIAL HAEMORRHAGE [None]
  - CARDIAC TAMPONADE [None]
  - CORONARY ARTERY PERFORATION [None]
  - INCORRECT ROUTE OF DRUG ADMINISTRATION [None]
  - VENTRICULAR TACHYCARDIA [None]
